FAERS Safety Report 6498366-4 (Version None)
Quarter: 2009Q4

REPORT INFORMATION
  Report Type: 
  Country: None (occurrence: None)
  Receive Date: 20091215
  Receipt Date: 20091125
  Transmission Date: 20100525
  Serious: Yes (Hospitalization)
  Sender: FDA-Public Use
  Company Number: US-PERRIGO-06US005692

PATIENT
  Sex: Male
  Weight: 81.633 kg

DRUGS (4)
  1. ACETAMINOPHEN 500MG 484 [Suspect]
     Indication: BACK PAIN
     Dosage: 1000 MG DAILY AT BEDTIME
     Route: 048
     Dates: start: 20061101, end: 20061108
  2. TRAZODONE HCL [Concomitant]
     Indication: DRUG USE FOR UNKNOWN INDICATION
     Dosage: UNKNOWN
     Route: 048
  3. HYDROCODONE [Concomitant]
     Indication: DRUG USE FOR UNKNOWN INDICATION
     Dosage: UNKNOWN
     Route: 048
  4. VENTOLIN [Concomitant]
     Indication: ASTHMA
     Dosage: UNKNOWN
     Route: 055

REACTIONS (3)
  - ANAL FISTULA [None]
  - PRODUCT FORMULATION ISSUE [None]
  - PRODUCT QUALITY ISSUE [None]
